FAERS Safety Report 10395235 (Version 2)
Quarter: 2014Q3

REPORT INFORMATION
  Report Type: Spontaneous
  Country: US (occurrence: US)
  Receive Date: 20140820
  Receipt Date: 20140915
  Transmission Date: 20150326
  Serious: No
  Sender: FDA-Public Use
  Company Number: US-ASTRAZENECA-2014SE58336

PATIENT
  Age: 78 Year
  Sex: Female

DRUGS (2)
  1. SYMBICORT [Suspect]
     Active Substance: BUDESONIDE\FORMOTEROL FUMARATE DIHYDRATE
     Dosage: 160/4.5 TWO PUFFS TWO TIMES A DAY
     Route: 055
     Dates: start: 20140717
  2. SYMBICORT [Suspect]
     Active Substance: BUDESONIDE\FORMOTEROL FUMARATE DIHYDRATE
     Dosage: 160/4.5 TWO PUFFS TWO TIMES A DAY
     Route: 055
     Dates: start: 20121116

REACTIONS (2)
  - Drug dose omission [Unknown]
  - Dyspnoea [Unknown]
